FAERS Safety Report 14984927 (Version 1)
Quarter: 2018Q2

REPORT INFORMATION
  Report Type: Spontaneous
  Country: US (occurrence: US)
  Receive Date: 20180607
  Receipt Date: 20180607
  Transmission Date: 20180711
  Serious: Yes (Life-Threatening, Hospitalization)
  Sender: FDA-Public Use
  Company Number: US-MYLANLABS-2018M1038143

PATIENT
  Age: 49 Year
  Sex: Female

DRUGS (2)
  1. HEPARIN [Suspect]
     Active Substance: HEPARIN SODIUM
     Indication: PRODUCT USED FOR UNKNOWN INDICATION
     Route: 065
  2. COUMADIN [Concomitant]
     Active Substance: WARFARIN SODIUM
     Indication: ANTICOAGULANT THERAPY
     Dosage: UNK
     Route: 065

REACTIONS (8)
  - Localised oedema [Unknown]
  - Pleural effusion [Recovered/Resolved]
  - Respiratory failure [Recovering/Resolving]
  - Heparin-induced thrombocytopenia [Unknown]
  - Oedema peripheral [Unknown]
  - Oedema [Unknown]
  - Face oedema [Unknown]
  - Vena cava thrombosis [Recovering/Resolving]
